FAERS Safety Report 7919465-3 (Version None)
Quarter: 2011Q4

REPORT INFORMATION
  Report Type: 
  Country: None (occurrence: None)
  Receive Date: 20111117
  Receipt Date: 20111114
  Transmission Date: 20120403
  Serious: No
  Sender: FDA-Public Use
  Company Number: US-PFIZER INC-2011074358

PATIENT
  Sex: Female
  Weight: 54 kg

DRUGS (4)
  1. EFFEXOR XR [Suspect]
     Indication: DEPRESSION
  2. VENLAFAXINE HCL [Suspect]
     Indication: ANXIETY
     Dosage: 100 MG, 2X/DAY
     Dates: start: 20110225, end: 20110403
  3. EFFEXOR XR [Suspect]
     Indication: ANXIETY
     Dosage: 150 MG, 1X/DAY
     Dates: start: 20110101, end: 20110201
  4. VENLAFAXINE HCL [Suspect]
     Indication: DEPRESSION

REACTIONS (12)
  - FEELING JITTERY [None]
  - MALAISE [None]
  - ABDOMINAL DISCOMFORT [None]
  - DIARRHOEA [None]
  - MUSCLE TWITCHING [None]
  - TOOTH FRACTURE [None]
  - DEPRESSED MOOD [None]
  - HEADACHE [None]
  - DENTAL CARIES [None]
  - DECREASED APPETITE [None]
  - NAUSEA [None]
  - ANXIETY [None]
